FAERS Safety Report 9125955 (Version 1)
Quarter: 2013Q1

REPORT INFORMATION
  Report Type: Spontaneous
  Country: US (occurrence: US)
  Receive Date: 20130228
  Receipt Date: 20130228
  Transmission Date: 20140127
  Serious: No
  Sender: FDA-Public Use
  Company Number: US-009507513-1302USA011178

PATIENT
  Age: 22 Year
  Sex: Female
  Weight: 122.45 kg

DRUGS (1)
  1. NEXPLANON [Suspect]
     Indication: CONTRACEPTION
     Dosage: 1 ROD FOR 3 YEARS
     Route: 059
     Dates: start: 20121210

REACTIONS (4)
  - Tinnitus [Unknown]
  - Decreased appetite [Unknown]
  - Headache [Unknown]
  - Pain [Unknown]
